FAERS Safety Report 7907464-7 (Version None)
Quarter: 2011Q4

REPORT INFORMATION
  Report Type: 
  Country: None (occurrence: None)
  Receive Date: 20111109
  Receipt Date: 20111031
  Transmission Date: 20120403
  Serious: Yes (Hospitalization, Disabling, Other)
  Sender: FDA-Public Use
  Company Number: 2011MA016005

PATIENT
  Age: 1 Year
  Sex: Male

DRUGS (6)
  1. LIDOCAINE [Suspect]
     Indication: CONVULSION
  2. MIDAZOLAM HCL [Suspect]
     Indication: CONVULSION
  3. CARBAMAZEPINE [Suspect]
     Indication: CONVULSION
  4. ACETAZOLAMIDE [Suspect]
     Indication: CONVULSION
     Dosage: 15 G/KG;QD
  5. PHENYTOIN [Suspect]
     Indication: CONVULSION
  6. PHENOBARBITAL TAB [Suspect]
     Indication: CONVULSION
     Dosage: 5 MG/KG;QD

REACTIONS (5)
  - PSYCHOMOTOR SKILLS IMPAIRED [None]
  - CEREBRAL ATROPHY [None]
  - APNOEIC ATTACK [None]
  - EPILEPSY [None]
  - BROMODERMA [None]
